FAERS Safety Report 11010921 (Version 2)
Quarter: 2015Q2

REPORT INFORMATION
  Report Type: Spontaneous
  Country: US (occurrence: US)
  Receive Date: 20150410
  Receipt Date: 20150506
  Transmission Date: 20150821
  Serious: Yes (Other)
  Sender: FDA-Public Use
  Company Number: US-ASTRAZENECA-2014SE00342

PATIENT
  Age: 16534 Day
  Sex: Male
  Weight: 104.3 kg

DRUGS (36)
  1. BYETTA [Suspect]
     Active Substance: EXENATIDE
     Indication: DIABETES MELLITUS
     Route: 065
     Dates: start: 20120314
  2. BYETTA [Suspect]
     Active Substance: EXENATIDE
     Indication: DIABETES MELLITUS
     Route: 065
     Dates: start: 201210, end: 201212
  3. PLAVIX [Concomitant]
     Active Substance: CLOPIDOGREL BISULFATE
     Dosage: DAILY
     Route: 065
  4. FISH OIL [Concomitant]
     Active Substance: FISH OIL
  5. ALBUTEROL. [Concomitant]
     Active Substance: ALBUTEROL
  6. DIOVAN [Concomitant]
     Active Substance: VALSARTAN
     Dosage: DAILY
     Route: 065
  7. MACROBID [Concomitant]
     Active Substance: NITROFURANTOIN\NITROFURANTOIN MONOHYDRATE
     Route: 048
     Dates: start: 20150409
  8. CELEXA [Concomitant]
     Active Substance: CITALOPRAM HYDROBROMIDE
     Route: 065
  9. FLAGYL [Concomitant]
     Active Substance: METRONIDAZOLE\METRONIDAZOLE HYDROCHLORIDE
     Dosage: DAILY
     Route: 065
     Dates: start: 20121227
  10. CLARITHROMYCIN. [Concomitant]
     Active Substance: CLARITHROMYCIN
     Route: 048
     Dates: start: 20150309
  11. MUCINEX DM [Concomitant]
     Active Substance: DEXTROMETHORPHAN HYDROBROMIDE\GUAIFENESIN
     Dosage: 30-600 MG, EVERY 12 HOURS
     Route: 048
     Dates: start: 20150309
  12. FAMOTIDINE. [Concomitant]
     Active Substance: FAMOTIDINE
     Dosage: DAILY
     Route: 048
     Dates: start: 20130115
  13. LEVEMIR [Concomitant]
     Active Substance: INSULIN DETEMIR
     Dosage: 100 UNITS/ ML SOLUTION 20 UNITS QHS
     Dates: start: 20150409
  14. MORPHIN [Concomitant]
     Active Substance: MORPHINE
     Dosage: 45 MG DAILY
  15. XANAX [Concomitant]
     Active Substance: ALPRAZOLAM
     Dates: start: 20150904
  16. CITALOPRAM HYDROBROMIDE. [Concomitant]
     Active Substance: CITALOPRAM HYDROBROMIDE
     Dosage: 40 MG 2 TAB DAILY
     Dates: start: 20130115
  17. ROSUVASTATIN CALCIUM. [Concomitant]
     Active Substance: ROSUVASTATIN CALCIUM
     Dosage: DAILY
     Route: 065
     Dates: start: 20130115
  18. SUPRAX [Concomitant]
     Active Substance: CEFIXIME
     Dates: start: 20150210
  19. BYETTA [Suspect]
     Active Substance: EXENATIDE
     Indication: DIABETES MELLITUS
     Dosage: 10 MCG SUBCUTANEOUS TWICE A DAY
     Route: 065
  20. DUTASTERIDE. [Concomitant]
     Active Substance: DUTASTERIDE
     Dosage: 0.5 MG DAILY
  21. PANTOPRAZOLE [Concomitant]
     Active Substance: PANTOPRAZOLE SODIUM
     Dosage: DAILY
     Route: 065
  22. ZOLPIDEM [Concomitant]
     Active Substance: ZOLPIDEM\ZOLPIDEM TARTRATE
     Dosage: DAILY
     Route: 065
     Dates: start: 20130130
  23. ALPRAZOLAM. [Concomitant]
     Active Substance: ALPRAZOLAM
  24. HYDROCODONE-ACETAMINOPHENE [Concomitant]
     Dosage: 5-325 MG, EVERY SIX HOURS
     Dates: start: 20150409
  25. CRESTOR [Concomitant]
     Active Substance: ROSUVASTATIN CALCIUM
  26. ONDANSETRON [Concomitant]
     Active Substance: ONDANSETRON
     Dosage: DAILY
     Route: 065
     Dates: start: 20130115
  27. HUMALOG MIX [Concomitant]
     Active Substance: INSULIN LISPRO
     Dosage: 12 UNITS WITH MEAL
     Dates: start: 20150409
  28. BYETTA [Suspect]
     Active Substance: EXENATIDE
     Indication: DIABETES MELLITUS
     Dosage: 10 MCG PEN
     Route: 065
     Dates: start: 20121107
  29. JANUMET [Concomitant]
     Active Substance: METFORMIN HYDROCHLORIDE\SITAGLIPTIN PHOSPHATE
     Route: 065
  30. PRAVASTATIN [Concomitant]
     Active Substance: PRAVASTATIN\PRAVASTATIN SODIUM
     Route: 065
  31. GLIPIZIDE. [Concomitant]
     Active Substance: GLIPIZIDE
     Dosage: 20 TWICE A DAY
     Route: 065
  32. METFORMIN [Concomitant]
     Active Substance: METFORMIN HYDROCHLORIDE
  33. OXYCODONE [Concomitant]
     Active Substance: OXYCODONE
     Dosage: 10 MG TAB DAILY
     Dates: start: 20130115
  34. SYMBICORT [Concomitant]
     Active Substance: BUDESONIDE\FORMOTEROL FUMARATE DIHYDRATE
  35. LOSARTAN POTASSIUM. [Concomitant]
     Active Substance: LOSARTAN POTASSIUM
     Dates: start: 20150409
  36. BENZONATATE. [Concomitant]
     Active Substance: BENZONATATE
     Route: 048
     Dates: start: 20150309

REACTIONS (2)
  - Adenocarcinoma pancreas [Unknown]
  - Pancreatitis [Unknown]

NARRATIVE: CASE EVENT DATE: 20121012
